APPROVED DRUG PRODUCT: FLUDEOXYGLUCOSE F18
Active Ingredient: FLUDEOXYGLUCOSE F-18
Strength: 20-500mCi/ML
Dosage Form/Route: INJECTABLE;INTRAVENOUS
Application: A203665 | Product #001
Applicant: SOFIE CO DBA SOFIE
Approved: Feb 14, 2013 | RLD: No | RS: No | Type: DISCN